FAERS Safety Report 19641978 (Version 1)
Quarter: 2021Q3

REPORT INFORMATION
  Report Type: Spontaneous
  Country: NL (occurrence: NL)
  Receive Date: 20210731
  Receipt Date: 20210731
  Transmission Date: 20211014
  Serious: Yes (Other)
  Sender: FDA-Public Use
  Company Number: NL-ACCORD-233656

PATIENT

DRUGS (1)
  1. SPIRONOLACTONE ACCORD [Suspect]
     Active Substance: SPIRONOLACTONE
     Indication: PRODUCT USED FOR UNKNOWN INDICATION

REACTIONS (7)
  - Product packaging quantity issue [Unknown]
  - Product substitution issue [Unknown]
  - Dry skin [Unknown]
  - Arrhythmia [Unknown]
  - Intentional product use issue [Unknown]
  - Product packaging issue [Unknown]
  - Product complaint [Unknown]
